FAERS Safety Report 4483026-1 (Version None)
Quarter: 2004Q3

REPORT INFORMATION
  Report Type: 
  Country: None (occurrence: None)
  Receive Date: 20040921
  Receipt Date: 20040526
  Transmission Date: 20050211
  Serious: Yes (Death)
  Sender: FDA-Public Use
  Company Number: 163-20785-04050676 (0)

PATIENT
  Age: 64 Year
  Sex: Female

DRUGS (2)
  1. THALOMID [Suspect]
     Indication: GLIOBLASTOMA
     Dosage: 100 MG QD ORAL, 200 MG DAILY ORAL
     Route: 048
     Dates: start: 20040504, end: 20040510
  2. THALOMID [Suspect]
     Indication: GLIOBLASTOMA
     Dosage: 100 MG QD ORAL, 200 MG DAILY ORAL
     Route: 048
     Dates: start: 20040511, end: 20040514

REACTIONS (3)
  - DEATH [None]
  - DISEASE PROGRESSION [None]
  - OEDEMA [None]
